APPROVED DRUG PRODUCT: AMPICILLIN AND SULBACTAM
Active Ingredient: AMPICILLIN SODIUM; SULBACTAM SODIUM
Strength: EQ 2GM BASE/VIAL;EQ 1GM BASE/VIAL
Dosage Form/Route: INJECTABLE;INJECTION
Application: A065176 | Product #002 | TE Code: AP
Applicant: HQ SPECIALTY PHARMA CORP
Approved: Nov 30, 2005 | RLD: No | RS: No | Type: RX